FAERS Safety Report 13670783 (Version 1)
Quarter: 2017Q2

REPORT INFORMATION
  Report Type: Spontaneous
  Country: US (occurrence: US)
  Receive Date: 20170620
  Receipt Date: 20170620
  Transmission Date: 20170830
  Serious: No
  Sender: FDA-Public Use
  Company Number: US-ROCHE-1383822

PATIENT
  Sex: Female

DRUGS (5)
  1. XELODA [Suspect]
     Active Substance: CAPECITABINE
     Indication: RECTAL CANCER
     Dosage: 7 DAYS ON THEN 7 DAYS OFF
     Route: 048
     Dates: start: 20140123
  2. OMEPRAZOLE. [Concomitant]
     Active Substance: OMEPRAZOLE
  3. TAGAMET [Concomitant]
     Active Substance: CIMETIDINE
  4. LISINOPRIL. [Concomitant]
     Active Substance: LISINOPRIL
  5. HYDROCHLOROTHIAZIDE. [Concomitant]
     Active Substance: HYDROCHLOROTHIAZIDE

REACTIONS (2)
  - Epistaxis [Unknown]
  - Pain in extremity [Unknown]
